FAERS Safety Report 8075380-9 (Version None)
Quarter: 2012Q1

REPORT INFORMATION
  Report Type: 
  Country: None (occurrence: None)
  Receive Date: 20120127
  Receipt Date: 20120120
  Transmission Date: 20120608
  Serious: Yes (Hospitalization, Other)
  Sender: FDA-Public Use
  Company Number: US-BAYER-201021443NA

PATIENT
  Age: 70 Year
  Sex: Female

DRUGS (4)
  1. NEXAVAR [Suspect]
     Indication: HEPATIC NEOPLASM MALIGNANT
     Dosage: 200 MG, QD
     Route: 048
     Dates: start: 20100429, end: 20100501
  2. NEXAVAR [Suspect]
     Route: 048
     Dates: start: 20100622, end: 20100628
  3. NEXAVAR [Suspect]
     Dosage: 400 MG, QD
     Dates: end: 20120116
  4. NEXAVAR [Suspect]
     Dosage: 200 MG, BID
     Route: 048
     Dates: start: 20100629, end: 20101230

REACTIONS (16)
  - ABDOMINAL PAIN [None]
  - PLATELET COUNT DECREASED [None]
  - ALOPECIA [None]
  - ASTHENIA [None]
  - TONGUE ULCERATION [None]
  - DIARRHOEA [None]
  - DIZZINESS [None]
  - OESOPHAGEAL HAEMORRHAGE [None]
  - MYALGIA [None]
  - FLATULENCE [None]
  - DYSPNOEA [None]
  - STOMATITIS [None]
  - GASTROINTESTINAL MUCOSAL EXFOLIATION [None]
  - HAEMOGLOBIN DECREASED [None]
  - FATIGUE [None]
  - MUSCLE SPASMS [None]
